FAERS Safety Report 9744865 (Version 5)
Quarter: 2014Q2

REPORT INFORMATION
  Report Type: Report from Study
  Country: CA (occurrence: CA)
  Receive Date: 20131211
  Receipt Date: 20140414
  Transmission Date: 20141212
  Serious: Yes (Other)
  Sender: FDA-Public Use
  Company Number: CA-ROCHE-1261449

PATIENT
  Age: 49 Year
  Sex: Male
  Weight: 93 kg

DRUGS (17)
  1. RITUXAN [Suspect]
     Indication: GRANULOMATOSIS WITH POLYANGIITIS
     Dosage: FREQUENCY:WEEKLY X 4  LAST DOSE:30/AUG/2013
     Route: 042
     Dates: start: 20130809
  2. RITUXAN [Suspect]
     Route: 042
     Dates: start: 20131230
  3. LYRICA [Suspect]
     Indication: PRODUCT USED FOR UNKNOWN INDICATION
     Dosage: 75 MG IN MORNING AND 100 MG AT NIGHT
     Route: 048
  4. LYRICA [Suspect]
     Route: 048
  5. LYRICA [Suspect]
     Route: 048
  6. DIPHENHYDRAMINE HCL [Concomitant]
     Route: 048
     Dates: start: 20130809
  7. ACETAMINOPHEN [Concomitant]
     Route: 048
     Dates: start: 20130809
  8. METHYLPREDNISOLONE [Concomitant]
     Route: 042
     Dates: start: 20130809
  9. PREDNISONE [Concomitant]
     Dosage: 2 PILLS OF 5 MG DAILY
     Route: 065
  10. APO-SULFATRIM [Concomitant]
  11. DIOVAN [Concomitant]
  12. NPH INSULIN [Concomitant]
  13. METFORMIN [Concomitant]
     Route: 065
  14. SUPEUDOL [Concomitant]
     Dosage: AS REQUIRED
     Route: 065
  15. SUPEUDOL [Concomitant]
     Dosage: 2 TO 4 TIMES A DAY
     Route: 065
  16. ONGLYZA [Concomitant]
  17. OXYNEO [Concomitant]

REACTIONS (6)
  - Neuralgia [Unknown]
  - Dyspnoea [Recovered/Resolved]
  - Wound complication [Recovering/Resolving]
  - Heart rate increased [Unknown]
  - Blood pressure increased [Recovering/Resolving]
  - Sensory loss [Unknown]
